FAERS Safety Report 8854281 (Version 2)
Quarter: 2012Q4

REPORT INFORMATION
  Report Type: 
  Country: FR (occurrence: FR)
  Receive Date: 20121023
  Receipt Date: 20121108
  Transmission Date: 20130627
  Serious: Yes (Hospitalization, Other)
  Sender: FDA-Public Use
  Company Number: FR-PFIZER INC-2012260598

PATIENT
  Age: 65 Year
  Sex: Female

DRUGS (10)
  1. TRIATEC [Suspect]
     Dosage: 7.5 mg, daily
     Route: 048
     Dates: end: 20120925
  2. ACLASTA [Interacting]
     Dosage: 5 mg, single
     Route: 042
     Dates: start: 20120911, end: 20120911
  3. LASILIX FAIBLE [Concomitant]
     Dosage: 20 mg, daily
     Route: 048
     Dates: end: 20120925
  4. IPERTEN [Concomitant]
     Dosage: UNK
  5. ALDACTONE [Concomitant]
     Dosage: UNK
     Dates: end: 20120916
  6. CRESTOR [Concomitant]
     Dosage: UNK
     Dates: end: 20120925
  7. EZETROL [Concomitant]
     Dosage: UNK
  8. LEVOTHYROX [Concomitant]
     Dosage: UNK
  9. COUMADINE [Concomitant]
     Dosage: UNK
  10. PARACETAMOL [Concomitant]
     Dosage: UNK
     Dates: start: 20120911, end: 20120911

REACTIONS (9)
  - Drug interaction [Recovering/Resolving]
  - Renal failure acute [Recovering/Resolving]
  - Osteoporosis [Unknown]
  - Axonal neuropathy [Unknown]
  - Hyperthermia [Unknown]
  - Nausea [Unknown]
  - Polyuria [Unknown]
  - Polydipsia [Unknown]
  - Diarrhoea [Unknown]
